FAERS Safety Report 7795426-2 (Version None)
Quarter: 2011Q3

REPORT INFORMATION
  Report Type: 
  Country: None (occurrence: None)
  Receive Date: 20110930
  Receipt Date: 20110922
  Transmission Date: 20111222
  Serious: Yes (Other)
  Sender: FDA-Public Use
  Company Number: UCM201106-000019

PATIENT
  Age: 52 Year
  Sex: Female

DRUGS (3)
  1. OMEPRAZOLE [Suspect]
     Dosage: 20 MG PER DAY
  2. MELOXICAM [Suspect]
     Indication: OSTEOARTHRITIS
     Dosage: 15 MG PER DAY
  3. LISINOPRIL [Suspect]
     Dosage: 20 MG PER DAY

REACTIONS (6)
  - BLOOD IRON DECREASED [None]
  - ULCER HAEMORRHAGE [None]
  - ILEAL STENOSIS [None]
  - BLOOD ALBUMIN DECREASED [None]
  - ANAEMIA [None]
  - JEJUNAL STENOSIS [None]
